FAERS Safety Report 23725585 (Version 1)
Quarter: 2024Q2

REPORT INFORMATION
  Report Type: Spontaneous
  Country: US (occurrence: None)
  Receive Date: 20240410
  Receipt Date: 20240410
  Transmission Date: 20240716
  Serious: No
  Sender: FDA-Public Use
  Company Number: 2024A071377

PATIENT
  Sex: Female

DRUGS (1)
  1. FARXIGA [Suspect]
     Active Substance: DAPAGLIFLOZIN PROPANEDIOL
     Route: 048

REACTIONS (6)
  - Blood creatinine increased [Unknown]
  - Headache [Unknown]
  - Blood pressure decreased [Unknown]
  - Eye disorder [Unknown]
  - Weight decreased [Unknown]
  - Product use issue [Unknown]
